FAERS Safety Report 12071584 (Version 5)
Quarter: 2024Q3

REPORT INFORMATION
  Report Type: Spontaneous
  Country: FR (occurrence: FR)
  Receive Date: 20160212
  Receipt Date: 20240830
  Transmission Date: 20241016
  Serious: Yes (Hospitalization, Other)
  Sender: AUROBINDO
  Company Number: FR-AUROBINDO-AUR-APL-2016-01450

PATIENT
  Age: 64 Year
  Sex: Female

DRUGS (5)
  1. PREDNISOLONE [Suspect]
     Active Substance: PREDNISOLONE
     Indication: Kaposi^s sarcoma
     Dosage: 10 MILLIGRAM, DAILY
     Route: 065
  2. TERBINAFINE [Interacting]
     Active Substance: TERBINAFINE
     Indication: Fungal skin infection
     Dosage: UNK,  BOTH LOCAL AND SYSTEMIC
     Route: 065
  3. TERBINAFINE [Interacting]
     Active Substance: TERBINAFINE
     Dosage: UNK
     Route: 065
  4. TERBINAFINE [Interacting]
     Active Substance: TERBINAFINE
     Dosage: UNK
     Route: 061
  5. CYCLOSPORINE [Interacting]
     Active Substance: CYCLOSPORINE
     Indication: Kaposi^s sarcoma
     Dosage: 100 MILLIGRAM, ONCE A DAY
     Route: 065

REACTIONS (3)
  - Renal impairment [Unknown]
  - Fungal infection [Recovered/Resolved]
  - Drug interaction [Unknown]
